FAERS Safety Report 14949329 (Version 1)
Quarter: 2018Q2

REPORT INFORMATION
  Report Type: Spontaneous
  Country: TW (occurrence: TW)
  Receive Date: 20180529
  Receipt Date: 20180529
  Transmission Date: 20180711
  Serious: Yes (Other)
  Sender: FDA-Public Use
  Company Number: TW-GEHC-2018CSU002031

PATIENT

DRUGS (2)
  1. OMNIPAQUE [Suspect]
     Active Substance: IOHEXOL
     Indication: CORONARY ARTERY DISEASE
     Dosage: 280 ML, UNK
     Route: 042
  2. NORMAL SALINE [Concomitant]
     Active Substance: SODIUM CHLORIDE
     Indication: PROPHYLAXIS

REACTIONS (4)
  - Hyponatraemia [Recovered/Resolved]
  - Overdose [Recovered/Resolved]
  - Nephropathy toxic [Recovered/Resolved]
  - Hypervolaemia [Recovered/Resolved]
